FAERS Safety Report 14699568 (Version 2)
Quarter: 2018Q3

REPORT INFORMATION
  Report Type: Report from Study
  Country: SK (occurrence: SK)
  Receive Date: 20180330
  Receipt Date: 20180711
  Transmission Date: 20181010
  Serious: Yes (Hospitalization)
  Sender: FDA-Public Use
  Company Number: SK-MYLANLABS-2018M1018783

PATIENT
  Age: 70 Year
  Sex: Male
  Weight: 100.5 kg

DRUGS (5)
  1. METOPROLOL. [Suspect]
     Active Substance: METOPROLOL
     Indication: PRODUCT USED FOR UNKNOWN INDICATION
     Dosage: UNK
  2. ENTRESTO [Suspect]
     Active Substance: SACUBITRIL\VALSARTAN
     Dosage: 100 MG (49 MG OF SACUBITRIL/ 51 MG OF VALSARTAN), BID, (1?0?1)
     Route: 048
     Dates: start: 20161128, end: 20171003
  3. ENTRESTO [Suspect]
     Active Substance: SACUBITRIL\VALSARTAN
     Indication: CARDIAC FAILURE CHRONIC
     Dosage: 50 MG (24 MG OF SACUBITRIL/ 26 MG OF VALSARTAN), BID
     Route: 048
     Dates: start: 20161020, end: 20161128
  4. ENTRESTO [Suspect]
     Active Substance: SACUBITRIL\VALSARTAN
     Dosage: 50 MG (24 MG OF SACUBITRIL/ 26 MG OF VALSARTAN), QD
     Route: 048
     Dates: start: 20171019, end: 20180204
  5. DIGITALIS [Concomitant]
     Active Substance: DIGITALIS
     Indication: CARDIAC FAILURE CHRONIC
     Dosage: 0.25 MG, EXC WED AND SUN

REACTIONS (6)
  - Hypotension [Not Recovered/Not Resolved]
  - Blood creatinine increased [Unknown]
  - Blood urea increased [Unknown]
  - Cardiac failure [Recovering/Resolving]
  - Prescribed underdose [Unknown]
  - Inappropriate schedule of drug administration [Unknown]

NARRATIVE: CASE EVENT DATE: 20171003
